FAERS Safety Report 20458090 (Version 3)
Quarter: 2022Q1

REPORT INFORMATION
  Report Type: Report from Study
  Country: US (occurrence: US)
  Receive Date: 20220211
  Receipt Date: 20220218
  Transmission Date: 20220424
  Serious: No
  Sender: FDA-Public Use
  Company Number: US-NOVARTISTESTPH-NVSC2022US029385

PATIENT
  Age: 51 Year
  Sex: Female

DRUGS (1)
  1. GILENYA [Suspect]
     Active Substance: FINGOLIMOD HYDROCHLORIDE
     Indication: Multiple sclerosis
     Dosage: 0.5 MG, QD
     Route: 048
     Dates: start: 20220208

REACTIONS (8)
  - Chest discomfort [Unknown]
  - Fatigue [Unknown]
  - Chest pain [Unknown]
  - Anxiety [Unknown]
  - Tremor [Unknown]
  - Irritability [Unknown]
  - Panic attack [Unknown]
  - Hypertension [Unknown]

NARRATIVE: CASE EVENT DATE: 20220208
